FAERS Safety Report 23410045 (Version 1)
Quarter: 2024Q1

REPORT INFORMATION
  Report Type: Spontaneous
  Country: IT (occurrence: None)
  Receive Date: 20240117
  Receipt Date: 20240117
  Transmission Date: 20240409
  Serious: Yes (Hospitalization, Other)
  Sender: FDA-Public Use
  Company Number: 2024A012109

PATIENT
  Age: 54 Year
  Sex: Female
  Weight: 51 kg

DRUGS (3)
  1. QUETIAPINE [Suspect]
     Active Substance: QUETIAPINE
     Route: 048
  2. CITALOPRAM [Suspect]
     Active Substance: CITALOPRAM HYDROBROMIDE
  3. OLANZAPINE [Suspect]
     Active Substance: OLANZAPINE

REACTIONS (1)
  - Serotonin syndrome [Unknown]
